FAERS Safety Report 25868347 (Version 1)
Quarter: 2025Q4

REPORT INFORMATION
  Report Type: Spontaneous
  Country: CN (occurrence: CN)
  Receive Date: 20251001
  Receipt Date: 20251001
  Transmission Date: 20260117
  Serious: Yes (Hospitalization, Disabling)
  Sender: AMGEN
  Company Number: CN-AMGEN-CHNSP2025192356

PATIENT
  Age: 78 Year
  Sex: Male
  Weight: 50 kg

DRUGS (1)
  1. CARFILZOMIB [Suspect]
     Active Substance: CARFILZOMIB
     Indication: Plasma cell myeloma
     Dosage: 30 MILLIGRAM, QWK
     Route: 040
     Dates: start: 20250909, end: 20250916

REACTIONS (3)
  - Platelet count decreased [Recovering/Resolving]
  - Granulocyte count decreased [Recovering/Resolving]
  - White blood cell count decreased [Recovering/Resolving]

NARRATIVE: CASE EVENT DATE: 20250916
